FAERS Safety Report 8018756-8 (Version None)
Quarter: 2012Q1

REPORT INFORMATION
  Report Type: 
  Country: None (occurrence: None)
  Receive Date: 20120103
  Receipt Date: 20120103
  Transmission Date: 20120608
  Serious: Yes (Disabling)
  Sender: FDA-Public Use
  Company Number: None

PATIENT
  Age: 79 Year
  Sex: Female
  Weight: 58.967 kg

DRUGS (1)
  1. LIPITOR [Suspect]
     Indication: BLOOD CHOLESTEROL
     Dates: start: 20090201, end: 20090415

REACTIONS (5)
  - GAIT DISTURBANCE [None]
  - BALANCE DISORDER [None]
  - MUSCLE DISORDER [None]
  - PAIN [None]
  - ASTHENIA [None]
